FAERS Safety Report 23366844 (Version 2)
Quarter: 2024Q1

REPORT INFORMATION
  Report Type: Spontaneous
  Country: US (occurrence: US)
  Receive Date: 20240104
  Receipt Date: 20240125
  Transmission Date: 20240410
  Serious: Yes (Other)
  Sender: FDA-Public Use
  Company Number: US-PFIZER INC-202400001035

PATIENT
  Age: 53 Year
  Sex: Female
  Weight: 58.06 kg

DRUGS (5)
  1. PAXLOVID [Suspect]
     Active Substance: NIRMATRELVIR\RITONAVIR
     Indication: COVID-19 treatment
     Dosage: DAILY DOSE, UNITS: 300 MG / 100 MG DOSE PACK
     Route: 048
     Dates: start: 20231228, end: 20231229
  2. ALENDRONATE [Concomitant]
     Active Substance: ALENDRONATE SODIUM
     Indication: Osteoporosis
     Dosage: 70 MG, ONCE A WEEK
  3. OZANIMOD [Concomitant]
     Active Substance: OZANIMOD
     Indication: Multiple sclerosis
     Dosage: 0.92 MG, DAILY
     Route: 048
  4. FOSAMAX [Concomitant]
     Active Substance: ALENDRONATE SODIUM
     Indication: Osteoporosis
     Dosage: UNK, WEEKLY
     Dates: start: 202307
  5. CLIMARA PRO [Concomitant]
     Active Substance: ESTRADIOL\LEVONORGESTREL
     Indication: Hot flush
     Dosage: WEEKLY
     Dates: start: 202308, end: 20231224

REACTIONS (3)
  - Rectal haemorrhage [Recovered/Resolved]
  - Rectal ulcer [Recovered/Resolved]
  - Diarrhoea haemorrhagic [Recovered/Resolved]
